FAERS Safety Report 8404862-2 (Version None)
Quarter: 2012Q2

REPORT INFORMATION
  Report Type: 
  Country: None (occurrence: None)
  Receive Date: 20120601
  Receipt Date: 20120202
  Transmission Date: 20120825
  Serious: No
  Sender: FDA-Public Use
  Company Number: US-ASTRAZENECA-2012SE07770

PATIENT
  Age: 79 Year
  Sex: Female

DRUGS (5)
  1. ATACAND HCT [Suspect]
     Route: 048
  2. DITROPLAN XL [Concomitant]
  3. BYSTOLIC [Concomitant]
  4. NEXIUM [Suspect]
     Route: 048
  5. TRANQULIZERS [Concomitant]

REACTIONS (2)
  - ADVERSE DRUG REACTION [None]
  - ANXIETY [None]
